FAERS Safety Report 24926355 (Version 1)
Quarter: 2025Q1

REPORT INFORMATION
  Report Type: Spontaneous
  Country: US (occurrence: US)
  Receive Date: 20250205
  Receipt Date: 20250205
  Transmission Date: 20250409
  Serious: Yes (Other)
  Sender: JOHNSON AND JOHNSON
  Company Number: US-JNJFOC-20250185904

PATIENT
  Sex: Female

DRUGS (16)
  1. INVOKANA [Suspect]
     Active Substance: CANAGLIFLOZIN
     Indication: Product used for unknown indication
     Route: 048
  2. ALBUTEROL SULFATE [Concomitant]
     Active Substance: ALBUTEROL SULFATE
     Indication: Product used for unknown indication
  3. ALPRAZOLAM [Concomitant]
     Active Substance: ALPRAZOLAM
  4. BENZONATATE [Concomitant]
     Active Substance: BENZONATATE
  5. CEFDINIR [Concomitant]
     Active Substance: CEFDINIR
  6. ELIQUIS [Concomitant]
     Active Substance: APIXABAN
  7. ESOMEPRAZOLE [Concomitant]
     Active Substance: ESOMEPRAZOLE
  8. GLIMEPIRIDE [Concomitant]
     Active Substance: GLIMEPIRIDE
  9. LEVOTHYROXINE [Concomitant]
     Active Substance: LEVOTHYROXINE
  10. PREDNISONE [Concomitant]
     Active Substance: PREDNISONE
  11. ROSUVASTATIN [Concomitant]
     Active Substance: ROSUVASTATIN
  12. RYBELSUS [Concomitant]
     Active Substance: SEMAGLUTIDE
  13. SPIRONOLACTONE [Concomitant]
     Active Substance: SPIRONOLACTONE
  14. TRAMADOL [Concomitant]
     Active Substance: TRAMADOL
  15. TRELEGY ELLIPTA [Concomitant]
     Active Substance: FLUTICASONE FUROATE\UMECLIDINIUM BROMIDE\VILANTEROL TRIFENATATE
  16. TRESIBA [Concomitant]
     Active Substance: INSULIN DEGLUDEC

REACTIONS (2)
  - Hyperkalaemia [Unknown]
  - Azotaemia [Unknown]
